FAERS Safety Report 9576985 (Version 1)
Quarter: 2013Q4

REPORT INFORMATION
  Report Type: Spontaneous
  Country: US (occurrence: US)
  Receive Date: 20131001
  Receipt Date: 20131001
  Transmission Date: 20140711
  Serious: No
  Sender: FDA-Public Use
  Company Number: US-AMGEN-USASP2013005618

PATIENT
  Sex: Female
  Weight: 76.19 kg

DRUGS (9)
  1. ENBREL [Suspect]
     Indication: RHEUMATOID ARTHRITIS
     Dosage: 50 MG, QWK
     Route: 058
  2. PLAQUENIL                          /00072602/ [Concomitant]
     Dosage: 200 MG, UNK
  3. HYDROCHLOROTH [Concomitant]
     Dosage: 12.5 MG, UNK
  4. LEVOTHYROXIN [Concomitant]
     Dosage: 50 MUG, UNK
  5. FOLIC ACID [Concomitant]
     Dosage: UNK
  6. TYLENOL PM [Concomitant]
     Dosage: 25-500 MG
  7. MULTIVITAMINS, PLAIN [Concomitant]
     Dosage: UNK
  8. BLACK COHOSH                       /01456801/ [Concomitant]
     Dosage: 160 MG, UNK
  9. METHOTREXATE [Concomitant]
     Dosage: 1 G, UNK

REACTIONS (2)
  - Oropharyngeal pain [Unknown]
  - Injection site pain [Unknown]
